FAERS Safety Report 8449786-X (Version None)
Quarter: 2012Q2

REPORT INFORMATION
  Report Type: 
  Country: None (occurrence: None)
  Receive Date: 20120613
  Receipt Date: 20120601
  Transmission Date: 20120825
  Serious: Yes (Other)
  Sender: FDA-Public Use
  Company Number: 2012AP001766

PATIENT

DRUGS (1)
  1. AMIODARONE HYDROCHLORIDE [Suspect]
     Indication: PRODUCT USED FOR UNKNOWN INDICATION

REACTIONS (7)
  - PULMONARY TOXICITY [None]
  - LYMPHADENOPATHY MEDIASTINAL [None]
  - PLEURAL FIBROSIS [None]
  - LYMPHOID TISSUE HYPERPLASIA [None]
  - INTERSTITIAL LUNG DISEASE [None]
  - PLEURAL EFFUSION [None]
  - HILAR LYMPHADENOPATHY [None]
